FAERS Safety Report 7647192-9 (Version None)
Quarter: 2011Q3

REPORT INFORMATION
  Report Type: 
  Country: None (occurrence: None)
  Receive Date: 20110801
  Receipt Date: 20110719
  Transmission Date: 20111222
  Serious: Yes (Other)
  Sender: FDA-Public Use
  Company Number: US-ROCHE-754658

PATIENT
  Sex: Male
  Weight: 72.6 kg

DRUGS (4)
  1. ACCUTANE [Suspect]
     Route: 048
     Dates: start: 20001126
  2. ACCUTANE [Suspect]
     Route: 048
     Dates: end: 20010101
  3. ACCUTANE [Suspect]
     Indication: ACNE
     Route: 048
     Dates: start: 19900101, end: 19990206
  4. ACCUTANE [Suspect]
     Route: 048
     Dates: end: 20030101

REACTIONS (10)
  - BLOOD TRIGLYCERIDES INCREASED [None]
  - IRRITABLE BOWEL SYNDROME [None]
  - BLOOD CHOLESTEROL INCREASED [None]
  - INTESTINAL HAEMORRHAGE [None]
  - ANAL FISTULA [None]
  - RECTAL HAEMORRHAGE [None]
  - INFLAMMATORY BOWEL DISEASE [None]
  - ACNE [None]
  - COLITIS ULCERATIVE [None]
  - ABDOMINAL PAIN [None]
